FAERS Safety Report 8285791 (Version 6)
Quarter: 2013Q2

REPORT INFORMATION
  Report Type: Report from Study
  Country: CA (occurrence: CA)
  Receive Date: 20111213
  Receipt Date: 20130604
  Transmission Date: 20140414
  Serious: Yes (Hospitalization, Other)
  Sender: FDA-Public Use
  Company Number: PHHY2011CA101638

PATIENT
  Age: 12 Year
  Sex: Male

DRUGS (4)
  1. SANDOSTATIN LAR [Suspect]
     Indication: CARCINOID SYNDROME
     Dosage: 20 MG, QMO
     Route: 030
     Dates: start: 20110923
  2. SANDOSTATIN LAR [Suspect]
     Dosage: 30 MG, EVERY 4 WEEKS
     Route: 030
  3. PEGVISOMANT [Concomitant]
  4. SOMAVERT [Concomitant]
     Dosage: UNK UKN, UNK
     Dates: start: 201301

REACTIONS (4)
  - Device malfunction [Recovered/Resolved]
  - Neoplasm [Unknown]
  - Blood growth hormone increased [Recovered/Resolved]
  - Insulin-like growth factor increased [Unknown]
